FAERS Safety Report 25085044 (Version 5)
Quarter: 2025Q3

REPORT INFORMATION
  Report Type: Spontaneous
  Country: EU (occurrence: EU)
  Receive Date: 20250317
  Receipt Date: 20250709
  Transmission Date: 20251020
  Serious: Yes (Hospitalization, Other)
  Sender: SANOFI AVENTIS
  Company Number: EU-SA-2025SA072734

PATIENT
  Age: 58 Year
  Sex: Male

DRUGS (4)
  1. DUPIXENT [Suspect]
     Active Substance: DUPILUMAB
     Indication: Asthma
     Route: 065
     Dates: start: 20250213, end: 2025
  2. METHADONE [Concomitant]
     Active Substance: METHADONE HYDROCHLORIDE
     Indication: Drug dependence
  3. METHADONE [Concomitant]
     Active Substance: METHADONE HYDROCHLORIDE
     Indication: Drug abuse
  4. MONTELUKAST [Concomitant]
     Active Substance: MONTELUKAST

REACTIONS (6)
  - Miller Fisher syndrome [Recovered/Resolved]
  - Paraesthesia [Recovered/Resolved]
  - Areflexia [Recovered/Resolved]
  - Ataxia [Recovered/Resolved]
  - Gait disturbance [Recovered/Resolved]
  - Nerve injury [Unknown]

NARRATIVE: CASE EVENT DATE: 20250101
